FAERS Safety Report 6498162-8 (Version None)
Quarter: 2009Q4

REPORT INFORMATION
  Report Type: 
  Country: None (occurrence: None)
  Receive Date: 20091215
  Receipt Date: 20091207
  Transmission Date: 20100525
  Serious: Yes (Other)
  Sender: FDA-Public Use
  Company Number: B0577107A

PATIENT
  Sex: Female
  Weight: 89.5 kg

DRUGS (1)
  1. ALLI [Suspect]
     Dosage: 60MG VARIABLE DOSE
     Route: 048
     Dates: start: 20090523, end: 20090526

REACTIONS (2)
  - ABDOMINAL PAIN [None]
  - PRESYNCOPE [None]
